FAERS Safety Report 8295112-9 (Version None)
Quarter: 2012Q2

REPORT INFORMATION
  Report Type: 
  Country: None (occurrence: None)
  Receive Date: 20120418
  Receipt Date: 20120414
  Transmission Date: 20120825
  Serious: Yes (Hospitalization)
  Sender: FDA-Public Use
  Company Number: CN-ROCHE-1059917

PATIENT
  Sex: Female
  Weight: 52 kg

DRUGS (6)
  1. MYCOPHENOLATE MOFETIL (CELLCEPT) [Suspect]
     Indication: RENAL TRANSPLANT
     Route: 048
     Dates: start: 20060822
  2. MYCOPHENOLATE MOFETIL (CELLCEPT) [Suspect]
     Dosage: 500MG IN THE MORNING, 750MG IN THE EVENING
     Route: 048
  3. METHYLPREDNISOLONE [Concomitant]
     Indication: RENAL TRANSPLANT
     Route: 048
     Dates: start: 20060822
  4. TACROLIMUS (NON-ROCHE/NON-COMPARATOR) [Concomitant]
     Indication: RENAL TRANSPLANT
     Route: 048
     Dates: start: 20060822
  5. TACROLIMUS (NON-ROCHE/NON-COMPARATOR) [Concomitant]
     Route: 048
  6. METHYLPREDNISOLONE [Concomitant]
     Route: 048

REACTIONS (6)
  - ACUTE MYOCARDIAL INFARCTION [None]
  - VOMITING [None]
  - DIARRHOEA [None]
  - CARDIAC FAILURE [None]
  - ANAEMIA [None]
  - DECREASED APPETITE [None]
